FAERS Safety Report 7016347-9 (Version None)
Quarter: 2010Q3

REPORT INFORMATION
  Report Type: 
  Country: None (occurrence: None)
  Receive Date: 20100927
  Receipt Date: 20100915
  Transmission Date: 20110219
  Serious: Yes (Hospitalization)
  Sender: FDA-Public Use
  Company Number: FR-PFIZER INC-2010116389

PATIENT
  Age: 85 Year
  Sex: Female

DRUGS (11)
  1. ZYVOX [Suspect]
     Indication: STAPHYLOCOCCAL SEPSIS
     Dosage: UNK
     Route: 042
     Dates: start: 20100415, end: 20100416
  2. RIFAMPICIN [Suspect]
     Indication: STAPHYLOCOCCAL SEPSIS
     Dosage: UNK
     Route: 042
     Dates: start: 20100330, end: 20100415
  3. OFLOCET [Suspect]
     Indication: STAPHYLOCOCCAL SEPSIS
     Dosage: UNK
     Route: 042
     Dates: start: 20100330, end: 20100415
  4. ROCEPHIN [Concomitant]
     Dosage: UNK
     Dates: start: 20100330, end: 20100408
  5. PRIMPERAN TAB [Concomitant]
     Dosage: UNK
     Dates: start: 20100403, end: 20100427
  6. DOMPERIDONE [Concomitant]
     Dosage: UNK
     Dates: start: 20100401, end: 20100409
  7. EPREX [Concomitant]
     Dosage: UNK
     Dates: start: 20100325, end: 20100415
  8. ENGERIX-B [Concomitant]
     Dosage: UNK
     Dates: start: 20100327, end: 20100415
  9. CALCIDIA [Concomitant]
     Dosage: UNK
     Dates: start: 20100321, end: 20100415
  10. RENAGEL [Concomitant]
     Dosage: UNK
     Dates: start: 20100321, end: 20100405
  11. ACUPAN [Concomitant]
     Dosage: UNK
     Dates: start: 20100323, end: 20100415

REACTIONS (1)
  - PSORIASIS [None]
